FAERS Safety Report 14584688 (Version 1)
Quarter: 2018Q1

REPORT INFORMATION
  Report Type: Report from Study
  Country: None (occurrence: US)
  Receive Date: 20180301
  Receipt Date: 20180301
  Transmission Date: 20180509
  Serious: Yes (Other)
  Sender: FDA-Public Use
  Company Number: US-ABBVIE-18K-163-2259680-00

PATIENT
  Age: 53 Year
  Sex: Female
  Weight: 71.28 kg

DRUGS (1)
  1. HUMIRA [Suspect]
     Active Substance: ADALIMUMAB
     Indication: PSORIASIS
     Route: 058
     Dates: start: 20171110, end: 20180105

REACTIONS (6)
  - Post procedural infection [Recovered/Resolved]
  - Uterine prolapse [Recovered/Resolved]
  - Cystitis [Recovering/Resolving]
  - Postoperative wound infection [Recovered/Resolved]
  - Ovarian cyst [Recovered/Resolved]
  - Abdominal discomfort [Recovering/Resolving]

NARRATIVE: CASE EVENT DATE: 201801
